FAERS Safety Report 13597961 (Version 1)
Quarter: 2017Q2

REPORT INFORMATION
  Report Type: Spontaneous
  Country: FR (occurrence: FR)
  Receive Date: 20170531
  Receipt Date: 20170531
  Transmission Date: 20170830
  Serious: Yes (Congenital Anomaly)
  Sender: FDA-Public Use
  Company Number: FR-PFIZER INC-2017228276

PATIENT
  Age: 1 Day
  Sex: Female
  Weight: 3.3 kg

DRUGS (9)
  1. TERALITHE [Suspect]
     Active Substance: LITHIUM CARBONATE
     Indication: BIPOLAR DISORDER
     Dosage: 2 G, DAILY
     Route: 064
     Dates: start: 201108, end: 201205
  2. STILNOX [Suspect]
     Active Substance: ZOLPIDEM TARTRATE
     Dosage: 0.5 DF, DAILY
     Route: 064
     Dates: end: 20120711
  3. STILNOX [Suspect]
     Active Substance: ZOLPIDEM TARTRATE
     Indication: BIPOLAR DISORDER
     Dosage: 1 DF, DAILY
     Route: 064
     Dates: start: 20111026
  4. THERALENE [Suspect]
     Active Substance: TRIMEPRAZINE
     Indication: BIPOLAR DISORDER
     Dosage: 20 GTT, DAILY
     Route: 064
     Dates: start: 20111026
  5. THERALENE [Suspect]
     Active Substance: TRIMEPRAZINE
     Dosage: 5 GTT, DAILY
     Route: 064
     Dates: end: 20120711
  6. TERALITHE [Suspect]
     Active Substance: LITHIUM CARBONATE
     Dosage: 2 G, 1X/DAY
     Route: 064
     Dates: end: 20120711
  7. ZYPREXA [Suspect]
     Active Substance: OLANZAPINE
     Indication: BIPOLAR DISORDER
     Dosage: 7.5 MG, DAILY
     Route: 064
     Dates: start: 20111026, end: 20120711
  8. EFFEXOR [Suspect]
     Active Substance: VENLAFAXINE HYDROCHLORIDE
     Indication: BIPOLAR DISORDER
     Dosage: 75 MG, DAILY
     Route: 064
     Dates: start: 20111026, end: 20120711
  9. TERALITHE [Suspect]
     Active Substance: LITHIUM CARBONATE
     Dosage: 1.5 G, 1X/DAY
     Route: 064
     Dates: start: 201205

REACTIONS (3)
  - Atrial septal defect [Recovered/Resolved]
  - Maternal exposure during pregnancy [Recovered/Resolved]
  - Muscle tone disorder [Recovered/Resolved]

NARRATIVE: CASE EVENT DATE: 20120712
